FAERS Safety Report 20878050 (Version 3)
Quarter: 2022Q3

REPORT INFORMATION
  Report Type: Spontaneous
  Country: US (occurrence: US)
  Receive Date: 20220526
  Receipt Date: 20220804
  Transmission Date: 20221027
  Serious: Yes (Other)
  Sender: FDA-Public Use
  Company Number: US-PFIZER INC-202200123347

PATIENT
  Age: 46 Year
  Sex: Male

DRUGS (1)
  1. VFEND [Suspect]
     Active Substance: VORICONAZOLE
     Dosage: 250 MG, 2X/DAY (TAKE 5 TABS BY MOUTH TWICE A DAY - TOTAL DOSE OF 250MG BID)
     Route: 048

REACTIONS (1)
  - Lung disorder [Unknown]
